FAERS Safety Report 15361905 (Version 1)
Quarter: 2018Q3

REPORT INFORMATION
  Report Type: Spontaneous
  Country: US (occurrence: US)
  Receive Date: 20180831
  Receipt Date: 20180831
  Transmission Date: 20181010
  Serious: Yes (Hospitalization)
  Sender: FDA-Public Use
  Company Number: None

PATIENT
  Age: 61 Year
  Sex: Female
  Weight: 58.97 kg

DRUGS (1)
  1. VALSARTAN/HCTZ 320MG 12.5MG [Suspect]
     Active Substance: HYDROCHLOROTHIAZIDE\VALSARTAN
     Indication: HYPERTENSION
     Dates: start: 20171208, end: 201807

REACTIONS (12)
  - Urinary tract infection [None]
  - Dehydration [None]
  - Asthenia [None]
  - Visual impairment [None]
  - Muscle spasms [None]
  - Hyperkalaemia [None]
  - Dry mouth [None]
  - Oropharyngeal pain [None]
  - Dry eye [None]
  - Dizziness [None]
  - Bone pain [None]
  - Acute kidney injury [None]

NARRATIVE: CASE EVENT DATE: 20180427
